FAERS Safety Report 9781168 (Version 3)
Quarter: 2014Q2

REPORT INFORMATION
  Report Type: Spontaneous
  Country: US (occurrence: US)
  Receive Date: 20131224
  Receipt Date: 20140422
  Transmission Date: 20141212
  Serious: Yes (Other)
  Sender: FDA-Public Use
  Company Number: US-ASTRAZENECA-2012SE27523

PATIENT
  Age: 25143 Day
  Sex: Male

DRUGS (20)
  1. NEXIUM [Suspect]
     Indication: GASTROOESOPHAGEAL REFLUX DISEASE
     Route: 048
     Dates: start: 2001, end: 201310
  2. NEXIUM [Suspect]
     Indication: OESOPHAGITIS
     Route: 048
     Dates: start: 2001, end: 201310
  3. NEXIUM [Suspect]
     Indication: ULCER
     Route: 048
     Dates: start: 2001, end: 201310
  4. PRILOSEC OTC [Suspect]
     Indication: GASTROOESOPHAGEAL REFLUX DISEASE
     Route: 048
     Dates: start: 201310
  5. PRILOSEC OTC [Suspect]
     Indication: OESOPHAGITIS
     Route: 048
     Dates: start: 201310
  6. PRILOSEC OTC [Suspect]
     Indication: ULCER
     Route: 048
     Dates: start: 201310
  7. PRILOSEC OTC [Suspect]
     Indication: GASTROOESOPHAGEAL REFLUX DISEASE
     Route: 048
     Dates: start: 201403
  8. PRILOSEC OTC [Suspect]
     Indication: OESOPHAGITIS
     Route: 048
     Dates: start: 201403
  9. PRILOSEC OTC [Suspect]
     Indication: ULCER
     Route: 048
     Dates: start: 201403
  10. TOPIRAMATE [Concomitant]
     Indication: MUSCLE RELAXANT THERAPY
     Dates: end: 201403
  11. TOPIRAMATE [Concomitant]
     Indication: NEURALGIA
     Dates: end: 201403
  12. TOPIRAMATE [Concomitant]
     Indication: MUSCLE RELAXANT THERAPY
     Dates: start: 201403
  13. TOPIRAMATE [Concomitant]
     Indication: NEURALGIA
     Dates: start: 201403
  14. COREG [Concomitant]
     Indication: BLOOD PRESSURE ABNORMAL
  15. UNSPECIFIED [Concomitant]
     Indication: BLOOD CHOLESTEROL ABNORMAL
     Dosage: DAILY
  16. BLOOD PRESSURE MEDICATION [Concomitant]
     Indication: BLOOD PRESSURE ABNORMAL
  17. PAIN MEDICATION [Concomitant]
     Indication: BACK PAIN
  18. ANTIDEPRESSANTS [Concomitant]
     Indication: DEPRESSION
  19. ROLAIDS [Concomitant]
  20. ALKA-SELTZER [Concomitant]

REACTIONS (15)
  - Gastrooesophageal reflux disease [Unknown]
  - Oesophageal spasm [Recovered/Resolved]
  - Chest discomfort [Unknown]
  - Peripheral arterial occlusive disease [Unknown]
  - Oesophageal pain [Unknown]
  - Gastrooesophageal reflux disease [Unknown]
  - Hypophagia [Unknown]
  - Sleep disorder due to a general medical condition [Unknown]
  - Throat tightness [Unknown]
  - Dyspepsia [Unknown]
  - Dyspepsia [Unknown]
  - Memory impairment [Unknown]
  - Drug effect incomplete [Unknown]
  - Intentional product misuse [Unknown]
  - Drug dose omission [Not Recovered/Not Resolved]
